FAERS Safety Report 8237300 (Version 6)
Quarter: 2013Q3

REPORT INFORMATION
  Report Type: Spontaneous
  Country: US (occurrence: US)
  Receive Date: 20111109
  Receipt Date: 20130723
  Transmission Date: 20140515
  Serious: Yes (Hospitalization, Other)
  Sender: FDA-Public Use
  Company Number: US-ASTRAZENECA-2008UW20481

PATIENT
  Age: 85 Year
  Sex: Female
  Weight: 61.7 kg

DRUGS (4)
  1. ARIMIDEX [Suspect]
     Indication: BREAST CANCER FEMALE
     Route: 048
     Dates: start: 200806
  2. ARIMIDEX [Suspect]
     Indication: BREAST CANCER FEMALE
     Route: 048
  3. TOPROL XL [Suspect]
     Route: 048
  4. METAMUCIL [Concomitant]

REACTIONS (10)
  - Breast cancer [Recovered/Resolved]
  - Fall [Recovered/Resolved]
  - Joint injury [Recovered/Resolved]
  - Thrombosis [Recovered/Resolved]
  - Pulmonary embolism [Recovered/Resolved]
  - Weight decreased [Unknown]
  - Arthritis [Unknown]
  - Decreased appetite [Unknown]
  - Diarrhoea [Unknown]
  - Drug dose omission [Unknown]
